FAERS Safety Report 6896013-0 (Version None)
Quarter: 2010Q3

REPORT INFORMATION
  Report Type: 
  Country: None (occurrence: None)
  Receive Date: 20100802
  Receipt Date: 20100723
  Transmission Date: 20110219
  Serious: Yes (Hospitalization)
  Sender: FDA-Public Use
  Company Number: A0775491A

PATIENT
  Sex: Male

DRUGS (1)
  1. AVANDARYL [Suspect]
     Route: 048
     Dates: start: 20060901, end: 20070501

REACTIONS (2)
  - CARDIAC DISORDER [None]
  - MYOCARDIAL INFARCTION [None]
